FAERS Safety Report 12502423 (Version 3)
Quarter: 2016Q3

REPORT INFORMATION
  Report Type: Spontaneous
  Country: US (occurrence: US)
  Receive Date: 20160627
  Receipt Date: 20160726
  Transmission Date: 20161109
  Serious: Yes (Other)
  Sender: FDA-Public Use
  Company Number: US-009507513-1606USA009257

PATIENT
  Age: 24 Year
  Sex: Female

DRUGS (1)
  1. NEXPLANON [Suspect]
     Active Substance: ETONOGESTREL
     Dosage: UNK
     Route: 059
     Dates: start: 20160424, end: 20160606

REACTIONS (5)
  - Staphylococcal infection [Unknown]
  - Herpes zoster [Unknown]
  - Device kink [Recovered/Resolved]
  - Implant site dermatitis [Unknown]
  - Implant site infection [Unknown]

NARRATIVE: CASE EVENT DATE: 2016
